FAERS Safety Report 20595803 (Version 1)
Quarter: 2022Q1

REPORT INFORMATION
  Report Type: Spontaneous
  Country: US (occurrence: None)
  Receive Date: 20220315
  Receipt Date: 20220315
  Transmission Date: 20220423
  Serious: Yes (Hospitalization, Other)
  Sender: FDA-Public Use
  Company Number: US-MLMSERVICE-20220224-3396287-1

PATIENT
  Age: 41 Year
  Sex: Male

DRUGS (1)
  1. FENTANYL [Suspect]
     Active Substance: FENTANYL
     Indication: Sedation
     Route: 041

REACTIONS (4)
  - Agitation [Unknown]
  - Drug withdrawal syndrome [Unknown]
  - Delirium [Unknown]
  - Hypertension [Unknown]
